FAERS Safety Report 16242654 (Version 1)
Quarter: 2019Q2

REPORT INFORMATION
  Report Type: Spontaneous
  Country: US (occurrence: US)
  Receive Date: 20190425
  Receipt Date: 20190425
  Transmission Date: 20190711
  Serious: Yes (Other)
  Sender: FDA-Public Use
  Company Number: None

PATIENT
  Age: 51 Year
  Sex: Female

DRUGS (10)
  1. TAFINLAR [Suspect]
     Active Substance: DABRAFENIB MESYLATE
     Indication: LUNG NEOPLASM
     Route: 048
     Dates: start: 20190402
  2. OXYCODONE [Concomitant]
     Active Substance: OXYCODONE
  3. ATIVAN [Concomitant]
     Active Substance: LORAZEPAM
  4. PANTOPROZOLE [Concomitant]
  5. DEXAMETHSONE [Concomitant]
  6. ACETAMINOPHEN. [Concomitant]
     Active Substance: ACETAMINOPHEN
  7. MEKINIST [Suspect]
     Active Substance: TRAMETINIB DIMETHYL SULFOXIDE
     Indication: LUNG NEOPLASM
     Route: 048
     Dates: start: 20190402
  8. NORCO [Concomitant]
     Active Substance: ACETAMINOPHEN\HYDROCODONE BITARTRATE
  9. PROCHLORPERAZINE. [Concomitant]
     Active Substance: PROCHLORPERAZINE
  10. ONDANSTERON [Concomitant]
     Active Substance: ONDANSETRON

REACTIONS (1)
  - Fatigue [None]
